FAERS Safety Report 16971009 (Version 1)
Quarter: 2019Q4

REPORT INFORMATION
  Report Type: Spontaneous
  Country: US (occurrence: US)
  Receive Date: 20190912
  Receipt Date: 20190912
  Transmission Date: 20200122
  Serious: Yes (Other)
  Sender: FDA-Public Use
  Company Number: None

PATIENT
  Age: 69 Year
  Sex: Female
  Weight: 70.31 kg

DRUGS (1)
  1. ATORVASTATIN 80MG [Suspect]
     Active Substance: ATORVASTATIN
     Dosage: ?          QUANTITY:80 MG MILLIGRAM(S);OTHER FREQUENCY:BEDTIME;?
     Route: 048
     Dates: start: 20190604, end: 20190730

REACTIONS (9)
  - Agitation [None]
  - Depression [None]
  - Decreased appetite [None]
  - Bradyphrenia [None]
  - Confusional state [None]
  - Fatigue [None]
  - Myalgia [None]
  - Flatulence [None]
  - Constipation [None]

NARRATIVE: CASE EVENT DATE: 20190628
